FAERS Safety Report 9503614 (Version 1)
Quarter: 2013Q3

REPORT INFORMATION
  Report Type: Spontaneous
  Country: US (occurrence: None)
  Receive Date: 20130905
  Receipt Date: 20130905
  Transmission Date: 20140515
  Serious: No
  Sender: FDA-Public Use
  Company Number: None

PATIENT
  Age: 63 None
  Sex: Female

DRUGS (14)
  1. MYRBETRIQ [Suspect]
     Indication: URINARY INCONTINENCE
     Dosage: 25 MG 28 PILLS 1 MORNING 1 DAILY MOUTH
     Route: 048
     Dates: start: 20130730, end: 20130802
  2. DIOVAN [Concomitant]
  3. METFORMIN [Concomitant]
  4. RAINTIDINE [Concomitant]
  5. LOVASTATIN [Concomitant]
  6. BABY ASPIRIN [Concomitant]
  7. GLIPIZIDE [Concomitant]
  8. TROSPIUM [Concomitant]
  9. C-PACK [Concomitant]
  10. FISH OIL [Concomitant]
  11. VITAMIN C [Concomitant]
  12. MULTIVITAMIN [Concomitant]
  13. ACETAMINOPHEN [Concomitant]
  14. BABY ASPIRIN [Concomitant]

REACTIONS (1)
  - Ill-defined disorder [None]
